FAERS Safety Report 7008155-X (Version None)
Quarter: 2010Q3

REPORT INFORMATION
  Report Type: 
  Country: None (occurrence: None)
  Receive Date: 20100922
  Receipt Date: 20100909
  Transmission Date: 20110219
  Serious: Yes (Hospitalization)
  Sender: FDA-Public Use
  Company Number: FR-ELI_LILLY_AND_COMPANY-FR201009002201

PATIENT
  Sex: Male

DRUGS (8)
  1. GEMZAR [Suspect]
     Indication: NON-SMALL CELL LUNG CANCER METASTATIC
     Dosage: 2120 MG, CYCLE(UNKNOWN)
     Route: 042
     Dates: start: 20100630, end: 20100811
  2. FLECAINIDE ACETATE [Concomitant]
     Route: 048
     Dates: start: 20100705
  3. VENTOLIN [Concomitant]
     Indication: ARRHYTHMIA
  4. SYMBICORT [Concomitant]
  5. SOLUPRED [Concomitant]
  6. CISPLATIN [Concomitant]
     Indication: NON-SMALL CELL LUNG CANCER
     Route: 042
     Dates: start: 20100630
  7. AUGMENTIN '125' [Concomitant]
     Dosage: UNK, UNK
  8. OFLOCET [Concomitant]
     Dates: start: 20100616, end: 20100624

REACTIONS (7)
  - ARRHYTHMIA [None]
  - CHILLS [None]
  - DIARRHOEA [None]
  - HYPOTENSION [None]
  - INTERSTITIAL LUNG DISEASE [None]
  - PYREXIA [None]
  - TACHYCARDIA [None]
